FAERS Safety Report 9752746 (Version 2)
Quarter: 2014Q1

REPORT INFORMATION
  Report Type: Spontaneous
  Country: JP (occurrence: JP)
  Receive Date: 20131213
  Receipt Date: 20140214
  Transmission Date: 20141002
  Serious: Yes (Other)
  Sender: FDA-Public Use
  Company Number: JP-SA-2013SA128096

PATIENT
  Age: 83 Year
  Sex: Male

DRUGS (4)
  1. TAXOTERE [Suspect]
     Indication: NON-SMALL CELL LUNG CANCER
     Route: 042
     Dates: start: 20131205, end: 20131205
  2. TAXOTERE [Suspect]
     Indication: SQUAMOUS CELL CARCINOMA
     Route: 042
     Dates: start: 20131205, end: 20131205
  3. POLARAMINE [Concomitant]
  4. DAREN /SPA/ [Concomitant]

REACTIONS (1)
  - Shock [Recovering/Resolving]
